FAERS Safety Report 10589734 (Version 1)
Quarter: 2014Q4

REPORT INFORMATION
  Report Type: Report from Study
  Country: MX (occurrence: MX)
  Receive Date: 20141118
  Receipt Date: 20141118
  Transmission Date: 20150529
  Serious: Yes (Death, Other)
  Sender: FDA-Public Use
  Company Number: PHHY2014MX149958

PATIENT
  Age: 72 Year
  Sex: Female

DRUGS (1)
  1. CO-DIOVAN [Suspect]
     Active Substance: HYDROCHLOROTHIAZIDE\VALSARTAN
     Indication: PRODUCT USED FOR UNKNOWN INDICATION
     Dosage: 1 DF, QD (VALSARTAN 160 MG, HYDROCHLOROTHIAZIDE 12. 5 MG)
     Route: 048
     Dates: start: 201408

REACTIONS (3)
  - Intestinal ulcer [Fatal]
  - Neoplasm malignant [Unknown]
  - Kidney infection [Unknown]

NARRATIVE: CASE EVENT DATE: 201410
